FAERS Safety Report 9515621 (Version 1)
Quarter: 2013Q3

REPORT INFORMATION
  Report Type: Spontaneous
  Country: US (occurrence: US)
  Receive Date: 20130911
  Receipt Date: 20130911
  Transmission Date: 20140515
  Serious: Yes (Hospitalization)
  Sender: FDA-Public Use
  Company Number: US-TEVA-430644USA

PATIENT
  Sex: Female

DRUGS (1)
  1. QVAR [Suspect]
     Dosage: 2 PUFFS
     Route: 055

REACTIONS (2)
  - Asthma [Recovered/Resolved]
  - Device malfunction [Recovered/Resolved]
